FAERS Safety Report 9378397 (Version 2)
Quarter: 2013Q3

REPORT INFORMATION
  Report Type: Spontaneous
  Country: US (occurrence: US)
  Receive Date: 20130701
  Receipt Date: 20130729
  Transmission Date: 20140515
  Serious: Yes (Death)
  Sender: FDA-Public Use
  Company Number: US-GILEAD-2013-0078309

PATIENT
  Sex: Male

DRUGS (2)
  1. CAYSTON [Suspect]
     Indication: CYSTIC FIBROSIS
     Dosage: 75 MG, UNK
     Route: 055
     Dates: start: 20120928, end: 20130421
  2. CAYSTON [Suspect]
     Indication: PSEUDOMONAS INFECTION

REACTIONS (1)
  - Cardio-respiratory arrest [Fatal]
